FAERS Safety Report 13457783 (Version 1)
Quarter: 2017Q2

REPORT INFORMATION
  Report Type: Spontaneous
  Country: US (occurrence: US)
  Receive Date: 20170419
  Receipt Date: 20170419
  Transmission Date: 20170830
  Serious: Yes (Hospitalization, Other)
  Sender: FDA-Public Use
  Company Number: US-SHIRE-US201708137

PATIENT
  Sex: Female
  Weight: 58.5 kg

DRUGS (3)
  1. VYVANSE [Suspect]
     Active Substance: LISDEXAMFETAMINE DIMESYLATE
     Indication: BINGE EATING
     Dosage: UNK, 1X/DAY:QD (TAKING 20 MG OR 40 MG)
     Route: 048
     Dates: start: 201611
  2. VITAMIN B12 [Concomitant]
     Active Substance: CYANOCOBALAMIN
     Indication: PRODUCT USED FOR UNKNOWN INDICATION
     Dosage: UNK, UNKNOWN
     Route: 065
  3. VYVANSE [Suspect]
     Active Substance: LISDEXAMFETAMINE DIMESYLATE
     Dosage: 40 MG, 1X/DAY:QD
     Route: 048

REACTIONS (10)
  - Drug dose omission [Recovered/Resolved]
  - Drug interaction [Unknown]
  - Increased appetite [Unknown]
  - Drug ineffective [Unknown]
  - Dry mouth [Unknown]
  - Intentional self-injury [Unknown]
  - Palpitations [Unknown]
  - Suicidal ideation [Unknown]
  - Weight decreased [Unknown]
  - Anxiety [Unknown]

NARRATIVE: CASE EVENT DATE: 2017
